FAERS Safety Report 5044326-X (Version None)
Quarter: 2006Q2

REPORT INFORMATION
  Report Type: 
  Country: None (occurrence: None)
  Receive Date: 20060629
  Receipt Date: 20060530
  Transmission Date: 20061013
  Serious: Yes (Other)
  Sender: FDA-Public Use
  Company Number: 2006058478

PATIENT
  Age: 15 Year
  Sex: Female

DRUGS (2)
  1. NEURONTIN [Suspect]
     Indication: CONVULSION
     Dosage: 300 MG (100 MG, 3 IN 1 D), ORAL
     Route: 048
     Dates: start: 20050318
  2. VALPROATE SODIUM [Concomitant]

REACTIONS (3)
  - AGGRESSION [None]
  - DRUG EFFECT DECREASED [None]
  - GENERAL PHYSICAL HEALTH DETERIORATION [None]
